FAERS Safety Report 15584765 (Version 1)
Quarter: 2018Q4

REPORT INFORMATION
  Report Type: Spontaneous
  Country: US (occurrence: US)
  Receive Date: 20181105
  Receipt Date: 20181105
  Transmission Date: 20190205
  Serious: Yes (Other)
  Sender: FDA-Public Use
  Company Number: None

PATIENT
  Age: 59 Year
  Sex: Male
  Weight: 101 kg

DRUGS (1)
  1. CANGRELOR [Suspect]
     Active Substance: CANGRELOR
     Indication: ACUTE MYOCARDIAL INFARCTION
     Dosage: ?          OTHER FREQUENCY:PER MINUTE CONTINU;?
     Route: 041
     Dates: start: 20181103, end: 20181103

REACTIONS (4)
  - Hypotension [None]
  - Rash erythematous [None]
  - Infusion related reaction [None]
  - Dyspnoea [None]

NARRATIVE: CASE EVENT DATE: 20181103
